FAERS Safety Report 9812583 (Version 1)
Quarter: 2014Q1

REPORT INFORMATION
  Report Type: Report from Study
  Country: GR (occurrence: GR)
  Receive Date: 20140113
  Receipt Date: 20140113
  Transmission Date: 20141002
  Serious: Yes (Other)
  Sender: FDA-Public Use
  Company Number: GR-ROCHE-1330811

PATIENT
  Sex: Male

DRUGS (7)
  1. BEVACIZUMAB [Suspect]
     Indication: LUNG ADENOCARCINOMA
     Route: 042
     Dates: start: 20120725, end: 20121113
  2. BEVACIZUMAB [Suspect]
     Indication: LUNG ADENOCARCINOMA
     Route: 042
     Dates: start: 20121218, end: 20130218
  3. ERLOTINIB [Suspect]
     Indication: LUNG ADENOCARCINOMA
     Route: 048
     Dates: start: 20130415, end: 20130807
  4. ZURCAZOL [Concomitant]
  5. ZARZIO [Concomitant]
  6. VIBRAMYCIN (GREECE) [Concomitant]
  7. XOZAL [Concomitant]

REACTIONS (4)
  - Vision blurred [Unknown]
  - Rash [Unknown]
  - Neuropathy peripheral [Unknown]
  - Disease progression [Unknown]
